FAERS Safety Report 4850006-3 (Version None)
Quarter: 2005Q4

REPORT INFORMATION
  Report Type: 
  Country: None (occurrence: None)
  Receive Date: 20051102
  Receipt Date: 20050523
  Transmission Date: 20060501
  Serious: No
  Sender: FDA-Public Use
  Company Number: 200511032BWH

PATIENT
  Age: 78 Year
  Sex: Male

DRUGS (4)
  1. LEVITRA [Suspect]
     Indication: ERECTILE DYSFUNCTION
     Dosage: 10 MG, TOTAL DAILY, ORAL; 20 MG, TOTAL DAILY, ORAL
     Route: 048
     Dates: start: 20041001
  2. LEVITRA [Suspect]
     Indication: ERECTILE DYSFUNCTION
     Dosage: 10 MG, TOTAL DAILY, ORAL; 20 MG, TOTAL DAILY, ORAL
     Route: 048
     Dates: start: 20050301
  3. FLOMAX [Concomitant]
  4. MACRODANTIN [Concomitant]

REACTIONS (1)
  - ERECTILE DYSFUNCTION [None]
